FAERS Safety Report 20333746 (Version 2)
Quarter: 2022Q1

REPORT INFORMATION
  Report Type: Spontaneous
  Country: IT (occurrence: IT)
  Receive Date: 20220113
  Receipt Date: 20220128
  Transmission Date: 20220423
  Serious: Yes (Hospitalization)
  Sender: FDA-Public Use
  Company Number: IT-TEVA-2022-IT-1997404

PATIENT
  Age: 65 Year
  Sex: Female

DRUGS (10)
  1. FLUDARABINE [Suspect]
     Active Substance: FLUDARABINE PHOSPHATE
     Indication: Acute myeloid leukaemia
     Dosage: 30 MG/M2
     Route: 065
     Dates: start: 2020
  2. DAUNORUBICIN HYDROCHLORIDE [Suspect]
     Active Substance: DAUNORUBICIN HYDROCHLORIDE
     Indication: Acute myeloid leukaemia
     Dosage: 44 MG/M2 ONCE IN 3 DAYS
     Route: 065
     Dates: start: 202005
  3. DAUNORUBICIN HYDROCHLORIDE [Suspect]
     Active Substance: DAUNORUBICIN HYDROCHLORIDE
     Dosage: 29 MG/M2 ONCE IN 2 DAYS
     Route: 065
     Dates: start: 2020
  4. CYTARABINE [Suspect]
     Active Substance: CYTARABINE
     Indication: Acute myeloid leukaemia
     Dosage: 100 MG/M2 IN 3 DAYS
     Route: 065
     Dates: start: 202005
  5. CYTARABINE [Suspect]
     Active Substance: CYTARABINE
     Dosage: 65 MG/M2 ONCE IN 2 DAYS
     Route: 065
     Dates: start: 2020
  6. CYTARABINE [Suspect]
     Active Substance: CYTARABINE
     Dosage: 30 MG
     Route: 065
     Dates: start: 2020
  7. CYTARABINE [Suspect]
     Active Substance: CYTARABINE
     Dosage: 2 G/M2
     Route: 065
     Dates: start: 2020
  8. IDARUBICIN [Suspect]
     Active Substance: IDARUBICIN
     Indication: Acute myeloid leukaemia
     Dosage: 10 MG/M2
     Route: 065
     Dates: start: 2020
  9. METHOTREXATE [Concomitant]
     Active Substance: METHOTREXATE
     Indication: Acute myeloid leukaemia
     Dosage: 12 MG/M2
     Route: 065
     Dates: start: 2020
  10. METHYLPREDNISOLONE [Concomitant]
     Active Substance: METHYLPREDNISOLONE
     Indication: Acute myeloid leukaemia
     Dosage: 20 MG/M2
     Route: 065
     Dates: start: 2020

REACTIONS (4)
  - Febrile neutropenia [Recovered/Resolved]
  - Stenotrophomonas infection [Recovered/Resolved]
  - Sepsis [Recovered/Resolved]
  - Escherichia infection [Unknown]

NARRATIVE: CASE EVENT DATE: 20200101
